FAERS Safety Report 11479207 (Version 1)
Quarter: 2015Q3

REPORT INFORMATION
  Report Type: Spontaneous
  Country: NL (occurrence: NL)
  Receive Date: 20150909
  Receipt Date: 20150909
  Transmission Date: 20151125
  Serious: Yes (Other)
  Sender: FDA-Public Use
  Company Number: NL-CIPLA LTD.-2015NL07006

PATIENT

DRUGS (2)
  1. PAZOPANIB [Suspect]
     Active Substance: PAZOPANIB
     Dosage: 800 MG, DAILY, STARTED ON DAY 2 OF A 28-DAY CYCLE
     Route: 048
  2. TOPOTECAN [Suspect]
     Active Substance: TOPOTECAN\TOPOTECAN HYDROCHLORIDE
     Indication: NEOPLASM
     Dosage: 8 MG, MAXIMAL TOLERATED DOSE. ONCE WEEKLY (DAY 1, 8 AND 15) IN A 28-DAY CYCLE
     Route: 048

REACTIONS (1)
  - Insomnia [Unknown]
